FAERS Safety Report 14632451 (Version 10)
Quarter: 2019Q4

REPORT INFORMATION
  Report Type: Report from Study
  Country: CN (occurrence: CN)
  Receive Date: 20180313
  Receipt Date: 20191218
  Transmission Date: 20200122
  Serious: Yes (Hospitalization, Other)
  Sender: FDA-Public Use
  Company Number: PHHY2018CN035641

PATIENT
  Age: 37 Year
  Sex: Male
  Weight: 54 kg

DRUGS (45)
  1. MYFORTIC [Suspect]
     Active Substance: MYCOPHENOLATE SODIUM
     Dosage: 360 MG (PM), UNK
     Route: 065
     Dates: start: 20180508, end: 20180509
  2. MYFORTIC [Suspect]
     Active Substance: MYCOPHENOLATE SODIUM
     Dosage: 900 MG, UNK
     Route: 048
     Dates: start: 20180506, end: 20180510
  3. LIPITOR [Concomitant]
     Active Substance: ATORVASTATIN CALCIUM
     Indication: HYPOLIPIDAEMIA
     Dosage: 20 MG, UNK
     Route: 065
     Dates: start: 20180223
  4. SULPERAZONE [Concomitant]
     Active Substance: CEFOPERAZONE SODIUM\SULBACTAM SODIUM
     Dosage: 3 G, UNK
     Route: 065
     Dates: start: 20180508
  5. POTASSIUM CHLORIDE. [Concomitant]
     Active Substance: POTASSIUM CHLORIDE
     Indication: PROPHYLAXIS
     Dosage: 3 G, UNK
     Route: 065
     Dates: start: 20180512, end: 20180518
  6. INSULIN [Concomitant]
     Active Substance: INSULIN NOS
     Dosage: 6 IU, UNK
     Route: 065
     Dates: start: 20180511, end: 20180512
  7. IRON PROTEINSUCCINYLATE [Concomitant]
     Indication: BLOOD IRON
     Dosage: 1 DF, TID
     Route: 048
     Dates: start: 20171217
  8. MYFORTIC [Suspect]
     Active Substance: MYCOPHENOLATE SODIUM
     Dosage: 1080 MG, QD
     Route: 048
     Dates: start: 20170905, end: 20170914
  9. MYFORTIC [Suspect]
     Active Substance: MYCOPHENOLATE SODIUM
     Dosage: 720 MG, UNK
     Route: 048
     Dates: start: 20170914
  10. PANTOPRAZOLE SODIUM. [Concomitant]
     Active Substance: PANTOPRAZOLE SODIUM
     Dosage: 80 UNK, UNK
     Route: 065
     Dates: start: 20180519, end: 20180523
  11. FLUCONAZOLE. [Concomitant]
     Active Substance: FLUCONAZOLE
     Indication: INFECTION PROPHYLAXIS
     Dosage: 50 MG, UNK
     Route: 065
     Dates: start: 20180511, end: 20180518
  12. NIFEDIPINE. [Concomitant]
     Active Substance: NIFEDIPINE
     Indication: HYPERTENSION
     Dosage: 30 MG, BID
     Route: 048
     Dates: start: 20171208
  13. ASPIRIN. [Concomitant]
     Active Substance: ASPIRIN
     Indication: ANTIPYRESIS
     Dosage: 0.1 G, QD
     Route: 048
     Dates: start: 20171212
  14. FOLIC ACID. [Concomitant]
     Active Substance: FOLIC ACID
     Dosage: 10 MG, UNK
     Route: 065
     Dates: start: 20180509
  15. MYFORTIC [Suspect]
     Active Substance: MYCOPHENOLATE SODIUM
     Dosage: 1080 MG, UNK
     Route: 048
     Dates: start: 20171212
  16. BASILIXIMAB [Suspect]
     Active Substance: BASILIXIMAB
     Indication: PRODUCT USED FOR UNKNOWN INDICATION
     Dosage: 20 MG, QD
     Route: 065
     Dates: start: 20171205, end: 20171205
  17. ASPIRIN. [Concomitant]
     Active Substance: ASPIRIN
     Indication: ANALGESIC THERAPY
     Dosage: 0.1 G, UNK
     Route: 065
     Dates: start: 20180223
  18. ASPIRIN. [Concomitant]
     Active Substance: ASPIRIN
     Indication: PLATELET AGGREGATION INHIBITION
     Dosage: 0.1 G, UNK
     Route: 065
     Dates: start: 20180509
  19. SULPERAZONE [Concomitant]
     Active Substance: CEFOPERAZONE SODIUM\SULBACTAM SODIUM
     Indication: ANTI-INFECTIVE THERAPY
     Dosage: 3 G, UNK
     Route: 065
     Dates: start: 20180223, end: 20180227
  20. PANTOPRAZOLE SODIUM. [Concomitant]
     Active Substance: PANTOPRAZOLE SODIUM
     Indication: PROPHYLAXIS
     Dosage: 160 MG, UNK
     Route: 065
     Dates: start: 20180510, end: 20180511
  21. MEROPENEM. [Concomitant]
     Active Substance: MEROPENEM
     Indication: INFECTION PROPHYLAXIS
     Dosage: 3 G, UNK
     Route: 065
     Dates: start: 20180511, end: 20180513
  22. SIROLIMUS. [Concomitant]
     Active Substance: SIROLIMUS
     Indication: IMMUNOSUPPRESSANT DRUG THERAPY
     Dosage: 0.50 MG, UNK
     Route: 065
     Dates: start: 20180522
  23. BASILIXIMAB [Suspect]
     Active Substance: BASILIXIMAB
     Dosage: 20 MG, QD
     Route: 065
     Dates: start: 20171209, end: 20171209
  24. MOXIFLOXACIN. [Concomitant]
     Active Substance: MOXIFLOXACIN
     Indication: INFECTION PROPHYLAXIS
     Dosage: 400 MG, UNK
     Route: 065
     Dates: start: 20180511, end: 20180518
  25. CALCIUM CARBONATE. [Concomitant]
     Active Substance: CALCIUM CARBONATE
     Indication: BLOOD PHOSPHORUS INCREASED
     Dosage: 600 MG, QD
     Route: 048
     Dates: start: 20171209
  26. CEFOPERAZONE AND SULBACTAM [Concomitant]
     Active Substance: CEFOPERAZONE SODIUM\SULBACTAM SODIUM
     Indication: INFECTION PROPHYLAXIS
     Dosage: 3 G, UNK
     Route: 065
     Dates: start: 20180508, end: 20180508
  27. MYFORTIC [Suspect]
     Active Substance: MYCOPHENOLATE SODIUM
     Dosage: 360 MG, QD (AM)
     Route: 048
     Dates: start: 20180225, end: 20180225
  28. MYFORTIC [Suspect]
     Active Substance: MYCOPHENOLATE SODIUM
     Dosage: 540 MG, BID (MORNING AND EVENING)
     Route: 048
     Dates: start: 20180225, end: 20180507
  29. METOPROLOL. [Concomitant]
     Active Substance: METOPROLOL
     Indication: HYPERTENSION
     Dosage: 25 MG, UNK
     Route: 065
     Dates: start: 20180509
  30. INSULIN [Concomitant]
     Active Substance: INSULIN NOS
     Indication: PROPHYLAXIS
     Dosage: 20 IU, UNK
     Route: 065
     Dates: start: 20180510, end: 20180510
  31. FUROSEMIDE. [Concomitant]
     Active Substance: FUROSEMIDE
     Indication: PRODUCT USED FOR UNKNOWN INDICATION
     Dosage: 20 MG, UNK
     Route: 065
     Dates: start: 20180514, end: 20180514
  32. BENZBROMARONE [Concomitant]
     Active Substance: BENZBROMARONE
     Indication: HYPERURICAEMIA
     Dosage: 50 MG, QD
     Route: 048
     Dates: start: 20171214
  33. MYFORTIC [Suspect]
     Active Substance: MYCOPHENOLATE SODIUM
     Dosage: 720 MG, QD
     Route: 048
     Dates: start: 20170831, end: 20170904
  34. MYFORTIC [Suspect]
     Active Substance: MYCOPHENOLATE SODIUM
     Dosage: 1440 MG, UNK
     Route: 048
     Dates: start: 20171206, end: 20171210
  35. MYFORTIC [Suspect]
     Active Substance: MYCOPHENOLATE SODIUM
     Dosage: 360 MG, Q12H
     Route: 048
     Dates: start: 20180511, end: 20180516
  36. METOPROLOL. [Concomitant]
     Active Substance: METOPROLOL
     Indication: ANAEMIA
  37. MYFORTIC [Suspect]
     Active Substance: MYCOPHENOLATE SODIUM
     Indication: RENAL TRANSPLANT
     Dosage: 1440 MG, QD
     Route: 048
     Dates: start: 20170821, end: 20170830
  38. MYFORTIC [Suspect]
     Active Substance: MYCOPHENOLATE SODIUM
     Dosage: 540 MG, QD
     Route: 048
     Dates: start: 20170831, end: 20170904
  39. MYFORTIC [Suspect]
     Active Substance: MYCOPHENOLATE SODIUM
     Dosage: 1260 MG (720 MG IN MORNING AND 540 MG IN THE NIGHT)
     Route: 048
     Dates: start: 20171210, end: 20171211
  40. RECOMBINANT HUMAN ERYTHROPOIETIN [Concomitant]
     Active Substance: ERYTHROPOIETIN
     Indication: NEPHROGENIC ANAEMIA
     Dosage: 10000 IU, UNK
     Route: 065
     Dates: start: 20180509, end: 20180525
  41. DEXAMETHASONE. [Concomitant]
     Active Substance: DEXAMETHASONE
     Indication: DIARRHOEA
     Dosage: 0.25 G, UNK
     Route: 065
     Dates: start: 20180508, end: 20180510
  42. FOLIC ACID. [Concomitant]
     Active Substance: FOLIC ACID
     Indication: ANAEMIA
     Dosage: 10 MG, TID
     Route: 065
     Dates: start: 20171209
  43. MIZORIBINE [Concomitant]
     Active Substance: MIZORIBINE
     Indication: IMMUNOSUPPRESSANT DRUG THERAPY
     Dosage: 100 MG, UNK
     Route: 065
     Dates: start: 20180516
  44. CALCIUM CARBONATE. [Concomitant]
     Active Substance: CALCIUM CARBONATE
     Indication: BLOOD CALCIUM DECREASED
  45. IBUPROFEN. [Concomitant]
     Active Substance: IBUPROFEN
     Indication: ANTIPYRESIS
     Dosage: 10 ML, UNK
     Route: 065
     Dates: start: 20180512, end: 20180512

REACTIONS (16)
  - Diarrhoea [Recovered/Resolved]
  - Granulocytopenia [Recovered/Resolved]
  - Haemoglobin decreased [Unknown]
  - Pneumonia [Unknown]
  - Kidney transplant rejection [Recovered/Resolved]
  - Blood glucose increased [Unknown]
  - Anaemia [Unknown]
  - Body temperature increased [Recovering/Resolving]
  - Glomerular filtration rate decreased [Recovering/Resolving]
  - White blood cell count decreased [Unknown]
  - Diarrhoea [Recovered/Resolved]
  - Urinary tract obstruction [Not Recovered/Not Resolved]
  - Blood creatinine increased [Recovering/Resolving]
  - Urinary tract infection [Recovered/Resolved]
  - Urinary tract infection [Recovered/Resolved]
  - Blood urea increased [Recovering/Resolving]

NARRATIVE: CASE EVENT DATE: 20180223
